FAERS Safety Report 18595274 (Version 1)
Quarter: 2020Q4

REPORT INFORMATION
  Report Type: Spontaneous
  Country: US (occurrence: US)
  Receive Date: 20201209
  Receipt Date: 20201209
  Transmission Date: 20210114
  Serious: No
  Sender: FDA-Public Use
  Company Number: None

PATIENT
  Weight: 43.09 kg

DRUGS (5)
  1. APTIOM [Concomitant]
     Active Substance: ESLICARBAZEPINE ACETATE
  2. BRIVACT [Concomitant]
  3. EPICLOLEX [Concomitant]
  4. EVEROLIMUS. [Suspect]
     Active Substance: EVEROLIMUS
     Indication: TUBEROUS SCLEROSIS COMPLEX
     Route: 048
     Dates: start: 20201128, end: 20201204
  5. FLUOXETINE [Concomitant]
     Active Substance: FLUOXETINE HYDROCHLORIDE

REACTIONS (6)
  - Product substitution issue [None]
  - Eructation [None]
  - Insurance issue [None]
  - Screaming [None]
  - Intentional self-injury [None]
  - Social avoidant behaviour [None]
